FAERS Safety Report 11735350 (Version 1)
Quarter: 2015Q4

REPORT INFORMATION
  Report Type: Spontaneous
  Country: US (occurrence: US)
  Receive Date: 20151113
  Receipt Date: 20151113
  Transmission Date: 20160304
  Serious: No
  Sender: FDA-Public Use
  Company Number: US-UNICHEM LABORATORIES LIMITED-UCM201509-000826

PATIENT
  Sex: Female
  Weight: 68.94 kg

DRUGS (3)
  1. TOUJEO [Concomitant]
     Active Substance: INSULIN GLARGINE
     Indication: DIABETES MELLITUS
  2. LEVOTHYROXINE. [Concomitant]
     Active Substance: LEVOTHYROXINE
     Indication: HYPOTHYROIDISM
  3. AMLODIPINE [Suspect]
     Active Substance: AMLODIPINE BESYLATE
     Indication: RENAL DISORDER
     Route: 048

REACTIONS (6)
  - Abdominal discomfort [Recovering/Resolving]
  - Myalgia [Recovered/Resolved]
  - Toxicity to various agents [Recovering/Resolving]
  - Blister [Recovering/Resolving]
  - Rash [Recovering/Resolving]
  - Arthralgia [Recovering/Resolving]
